FAERS Safety Report 10403873 (Version 1)
Quarter: 2014Q1

REPORT INFORMATION
  Report Type: Spontaneous
  Country: US (occurrence: None)
  Receive Date: 20130815
  Receipt Date: 20130815
  Transmission Date: 20141002
  Serious: No
  Sender: FDA-Public Use
  Company Number: ADR-2012-02090

PATIENT
  Sex: Male

DRUGS (1)
  1. LIORESAL INTRATHECAL (BACLOFEN INJECTION) [Suspect]
     Dosage: 85 MCG/DAY

REACTIONS (1)
  - No therapeutic response [None]
